FAERS Safety Report 5044646-9 (Version None)
Quarter: 2006Q3

REPORT INFORMATION
  Report Type: 
  Country: None (occurrence: None)
  Receive Date: 20060706
  Receipt Date: 20060626
  Transmission Date: 20061208
  Serious: Yes (Hospitalization)
  Sender: FDA-Public Use
  Company Number: FR-ABBOTT-06P-056-0336880-00

PATIENT
  Age: 26 Year
  Sex: Male

DRUGS (5)
  1. VALPROATE SODIUM [Suspect]
     Indication: PARTIAL SEIZURES
     Route: 065
  2. VALPROATE SODIUM [Suspect]
     Route: 065
  3. CARBAMAZEPINE [Suspect]
     Indication: PARTIAL SEIZURES
     Route: 065
     Dates: start: 20020101
  4. VIGABATRIN [Suspect]
     Indication: PARTIAL SEIZURES
     Route: 065
  5. LAMOTRIGINE [Concomitant]
     Indication: DRUG USE FOR UNKNOWN INDICATION

REACTIONS (9)
  - AUTOMATISM [None]
  - CONDITION AGGRAVATED [None]
  - CONVULSION [None]
  - GAZE PALSY [None]
  - GRAND MAL CONVULSION [None]
  - PERSEVERATION [None]
  - PETIT MAL EPILEPSY [None]
  - STATUS EPILEPTICUS [None]
  - STEREOTYPIC MOVEMENT DISORDER [None]
